FAERS Safety Report 12991000 (Version 1)
Quarter: 2016Q4

REPORT INFORMATION
  Report Type: Spontaneous
  Country: US (occurrence: US)
  Receive Date: 20161201
  Receipt Date: 20161201
  Transmission Date: 20170207
  Serious: Yes (Other)
  Sender: FDA-Public Use
  Company Number: None

PATIENT
  Age: 3 Year
  Sex: Male
  Weight: 13.95 kg

DRUGS (4)
  1. NEBULIZER [Concomitant]
     Active Substance: DEVICE
  2. ALBUTEROL. [Concomitant]
     Active Substance: ALBUTEROL
  3. BUDESONIDE. [Suspect]
     Active Substance: BUDESONIDE
     Indication: COUGH
     Route: 055
     Dates: start: 20161123, end: 20161201
  4. BUDESONIDE. [Suspect]
     Active Substance: BUDESONIDE
     Indication: RESPIRATORY DISORDER
     Route: 055
     Dates: start: 20161123, end: 20161201

REACTIONS (1)
  - Sleep terror [None]

NARRATIVE: CASE EVENT DATE: 20161128
